FAERS Safety Report 14597582 (Version 1)
Quarter: 2018Q1

REPORT INFORMATION
  Report Type: Spontaneous
  Country: RO (occurrence: RO)
  Receive Date: 20180305
  Receipt Date: 20180305
  Transmission Date: 20180509
  Serious: Yes (Hospitalization, Other)
  Sender: FDA-Public Use
  Company Number: RO-TORRENT-00000038

PATIENT
  Age: 9 Month
  Sex: Male

DRUGS (1)
  1. ESOMEPRAZOLE [Suspect]
     Active Substance: ESOMEPRAZOLE
     Indication: GASTROOESOPHAGEAL REFLUX DISEASE
     Dosage: 0.5 MG/KG/QD
     Dates: start: 201505

REACTIONS (3)
  - Meningoencephalitis bacterial [Recovering/Resolving]
  - Drug administered to patient of inappropriate age [Unknown]
  - Meningitis streptococcal [Recovering/Resolving]

NARRATIVE: CASE EVENT DATE: 2015
